FAERS Safety Report 6226888-X (Version None)
Quarter: 2009Q2

REPORT INFORMATION
  Report Type: 
  Country: None (occurrence: None)
  Receive Date: 20090612
  Receipt Date: 20090608
  Transmission Date: 20091009
  Serious: Yes (Death)
  Sender: FDA-Public Use
  Company Number: NZ-ASTRAZENECA-2009SE02344

PATIENT
  Age: 87 Year
  Sex: Female

DRUGS (1)
  1. LOSEC [Suspect]
     Dosage: DAILY
     Route: 048
     Dates: start: 19960524, end: 19960614

REACTIONS (2)
  - SEPSIS [None]
  - URINARY TRACT INFECTION [None]
